FAERS Safety Report 11427129 (Version 1)
Quarter: 2015Q3

REPORT INFORMATION
  Report Type: Spontaneous
  Country: US (occurrence: US)
  Receive Date: 20150827
  Receipt Date: 20150827
  Transmission Date: 20151125
  Serious: No
  Sender: FDA-Public Use
  Company Number: US-009507513-1508USA011221

PATIENT
  Age: 75 Year
  Sex: Female

DRUGS (3)
  1. BELSOMRA [Suspect]
     Active Substance: SUVOREXANT
     Dosage: UNK
     Route: 048
     Dates: start: 20150824
  2. BELSOMRA [Suspect]
     Active Substance: SUVOREXANT
     Indication: INSOMNIA
     Dosage: TAKING 5 MG OF BELSOMRA
     Route: 048
     Dates: start: 20150821, end: 20150821
  3. BELSOMRA [Suspect]
     Active Substance: SUVOREXANT
     Dosage: TAKING 10 MG OF BELSOMRA
     Route: 048
     Dates: start: 20150822, end: 20150823

REACTIONS (1)
  - Drug ineffective [Not Recovered/Not Resolved]

NARRATIVE: CASE EVENT DATE: 20150821
